FAERS Safety Report 16855903 (Version 1)
Quarter: 2019Q3

REPORT INFORMATION
  Report Type: Spontaneous
  Country: US (occurrence: US)
  Receive Date: 20190926
  Receipt Date: 20190926
  Transmission Date: 20191005
  Serious: No
  Sender: FDA-Public Use
  Company Number: US-BAYER-2019-170318

PATIENT
  Age: 82 Year
  Sex: Male
  Weight: 77 kg

DRUGS (2)
  1. MILK OF MAGNESIA ORIGINAL [Suspect]
     Active Substance: MAGNESIUM HYDROXIDE
     Indication: CONSTIPATION
     Dosage: 30 ML
     Route: 048
     Dates: start: 2019, end: 201909
  2. MIRALAX [Suspect]
     Active Substance: POLYETHYLENE GLYCOL 3350
     Indication: CONSTIPATION

REACTIONS (3)
  - Incorrect dose administered [Unknown]
  - Therapeutic product effect increased [Unknown]
  - Product use in unapproved indication [Unknown]
